FAERS Safety Report 17117366 (Version 2)
Quarter: 2019Q4

REPORT INFORMATION
  Report Type: Spontaneous
  Country: GR (occurrence: GR)
  Receive Date: 20191205
  Receipt Date: 20191206
  Transmission Date: 20200122
  Serious: Yes (Death, Life-Threatening, Hospitalization, Other)
  Sender: FDA-Public Use
  Company Number: GR-MYLANLABS-2019M1119426

PATIENT
  Age: 61 Year
  Sex: Male

DRUGS (5)
  1. CLOPIDOGREL [Suspect]
     Active Substance: CLOPIDOGREL BISULFATE
     Indication: MYOCARDIAL INFARCTION
     Dosage: 75 MG, QD
  2. TINZAPARIN [Concomitant]
     Active Substance: TINZAPARIN
     Indication: CEREBRAL INFARCTION
     Dosage: 200 MG/KG
  3. TINZAPARIN [Concomitant]
     Active Substance: TINZAPARIN
     Dosage: 175 MG/KG
  4. ACETYLSALICYLIC ACID [Suspect]
     Active Substance: ASPIRIN
     Dosage: 100 MG, QD
  5. ACETYLSALICYLIC ACID [Suspect]
     Active Substance: ASPIRIN
     Indication: MYOCARDIAL INFARCTION
     Dosage: 80 MG, QD

REACTIONS (4)
  - Abdominal pain [Unknown]
  - Drug ineffective [Fatal]
  - Depressed level of consciousness [Unknown]
  - Confusional state [Unknown]
